FAERS Safety Report 9945449 (Version 1)
Quarter: 2014Q1

REPORT INFORMATION
  Report Type: Spontaneous
  Country: US (occurrence: US)
  Receive Date: 20140303
  Receipt Date: 20140303
  Transmission Date: 20141002
  Serious: No
  Sender: FDA-Public Use
  Company Number: US-AMGEN-USASP2013074235

PATIENT
  Age: 18 Year
  Sex: Male
  Weight: 106.58 kg

DRUGS (5)
  1. ENBREL [Suspect]
     Indication: PRODUCT USED FOR UNKNOWN INDICATION
     Dosage: 50 MG, QWK
     Route: 058
  2. LITHIUM CARBON [Concomitant]
     Dosage: 300 MG, UNK
     Route: 048
  3. DIOVAN [Concomitant]
     Dosage: 80 MG, UNK
     Route: 048
  4. VITAMIN E                          /00110501/ [Concomitant]
     Dosage: 100 UNIT, UNK
     Route: 048
  5. FISH OIL [Concomitant]
     Dosage: UNK
     Route: 048

REACTIONS (1)
  - Hepatic enzyme increased [Unknown]
